FAERS Safety Report 5851392-8 (Version None)
Quarter: 2008Q3

REPORT INFORMATION
  Report Type: 
  Country: None (occurrence: None)
  Receive Date: 20080820
  Receipt Date: 20080811
  Transmission Date: 20090109
  Serious: Yes (Other)
  Sender: FDA-Public Use
  Company Number: JP-AVENTIS-200812381JP

PATIENT
  Age: 0 Year
  Sex: Male
  Weight: 4.93 kg

DRUGS (3)
  1. LANTUS [Suspect]
     Dosage: DOSE: 15-14 UNITS
     Route: 064
  2. NOVORAPID [Concomitant]
     Dosage: DOSE: 3-9-15 UNITS
     Route: 064
  3. ATONIN-O [Concomitant]
     Route: 064
     Dates: start: 20080318, end: 20080321

REACTIONS (3)
  - CLAVICLE FRACTURE [None]
  - DRUG EXPOSURE DURING PREGNANCY [None]
  - MACROSOMIA [None]
